FAERS Safety Report 7361319-8 (Version None)
Quarter: 2011Q1

REPORT INFORMATION
  Report Type: 
  Country: None (occurrence: None)
  Receive Date: 20110318
  Receipt Date: 20110311
  Transmission Date: 20110831
  Serious: Yes (Hospitalization)
  Sender: FDA-Public Use
  Company Number: B0699219A

PATIENT
  Age: 49 Year
  Sex: Male
  Weight: 144.5 kg

DRUGS (2)
  1. AVANDIA [Suspect]
     Dosage: 4MG PER DAY
     Route: 048
     Dates: start: 20050601, end: 20070601
  2. AVANDAMET [Suspect]
     Route: 048
     Dates: end: 20070601

REACTIONS (3)
  - DIZZINESS [None]
  - HYPERTROPHIC CARDIOMYOPATHY [None]
  - CARDIAC FAILURE CONGESTIVE [None]
